FAERS Safety Report 17584115 (Version 1)
Quarter: 2020Q1

REPORT INFORMATION
  Report Type: Spontaneous
  Country: US (occurrence: US)
  Receive Date: 20200323
  Receipt Date: 20200323
  Transmission Date: 20200409
  Serious: No
  Sender: FDA-Public Use
  Company Number: None

PATIENT
  Age: 52 Year
  Sex: Male

DRUGS (2)
  1. LISINOPRIL. [Concomitant]
     Active Substance: LISINOPRIL
  2. CAPECITABINE TAB 500MG [Suspect]
     Active Substance: CAPECITABINE
     Route: 048
     Dates: start: 20191211

REACTIONS (2)
  - Erythema [None]
  - Paraesthesia [None]

NARRATIVE: CASE EVENT DATE: 20200323
